FAERS Safety Report 5549048-4 (Version None)
Quarter: 2007Q4

REPORT INFORMATION
  Report Type: 
  Country: None (occurrence: None)
  Receive Date: 20071210
  Receipt Date: 20071203
  Transmission Date: 20080405
  Serious: Yes (Other)
  Sender: FDA-Public Use
  Company Number: 163-20785-07120139

PATIENT
  Age: 53 Year
  Sex: Female

DRUGS (8)
  1. THALOMID [Suspect]
     Indication: MULTIPLE MYELOMA
     Dosage: 200 MG, DAILY X 3 WEEKS, ORAL
     Route: 048
     Dates: start: 20070813, end: 20070901
  2. PROTONIX [Concomitant]
  3. ZOLOFT [Concomitant]
  4. SYNTHROID [Concomitant]
  5. ASPIRIN [Concomitant]
  6. SENOKOT [Concomitant]
  7. FENTANYL (FENTANYL) (POULTICE OR PATCH)` [Concomitant]
  8. ATIVAN [Concomitant]

REACTIONS (1)
  - INTERSTITIAL LUNG DISEASE [None]
